FAERS Safety Report 8508770-8 (Version None)
Quarter: 2012Q3

REPORT INFORMATION
  Report Type: 
  Country: None (occurrence: None)
  Receive Date: 20120703
  Receipt Date: 20120612
  Transmission Date: 20120928
  Serious: Yes (Hospitalization)
  Sender: FDA-Public Use
  Company Number: 001271994A

PATIENT
  Age: 57 Year
  Sex: Female

DRUGS (15)
  1. WELLBUTRIN [Concomitant]
  2. DOXYCYCLINE [Concomitant]
  3. DILAUDID [Concomitant]
  4. VENTOLIN [Concomitant]
  5. SKIN BRIGHTENING DECOLLETE AND NECK TREATMENT SPF 15 [Suspect]
     Dosage: DAILY DERMAL
  6. LASIX [Concomitant]
  7. MEANINGFUL BEAUTY DAY CREAM SPF 20 [Suspect]
     Dosage: DAILY DERMAL
     Dates: start: 20120523, end: 20120601
  8. ZOLOFT [Concomitant]
  9. COUMADIN [Concomitant]
  10. ADVAIR DISKUS 100/50 [Concomitant]
  11. OXYGEN [Concomitant]
  12. TRAZODONE HYDROCHLORIDE [Concomitant]
  13. LUMIGAN [Concomitant]
  14. RESTASIS [Concomitant]
  15. VALIUM [Concomitant]

REACTIONS (9)
  - MALAISE [None]
  - SWELLING FACE [None]
  - ERYTHEMA [None]
  - HYPERHIDROSIS [None]
  - ACCIDENTAL EXPOSURE [None]
  - PRURITUS [None]
  - THROAT IRRITATION [None]
  - PYREXIA [None]
  - BRONCHITIS [None]
